FAERS Safety Report 5896246-6 (Version None)
Quarter: 2008Q3

REPORT INFORMATION
  Report Type: 
  Country: None (occurrence: None)
  Receive Date: 20080924
  Receipt Date: 20080917
  Transmission Date: 20090109
  Serious: Yes (Life-Threatening, Other)
  Sender: FDA-Public Use
  Company Number: GB-GENENTECH-268411

PATIENT
  Age: 49 Year

DRUGS (1)
  1. HERCEPTIN [Suspect]
     Indication: BREAST CANCER METASTATIC
     Dosage: UNK

REACTIONS (2)
  - CATHETER RELATED COMPLICATION [None]
  - EJECTION FRACTION DECREASED [None]
